FAERS Safety Report 10042406 (Version 1)
Quarter: 2014Q1

REPORT INFORMATION
  Report Type: Spontaneous
  Country: US (occurrence: US)
  Receive Date: 20140327
  Receipt Date: 20140327
  Transmission Date: 20141002
  Serious: Yes (Hospitalization, Disabling, Other)
  Sender: FDA-Public Use
  Company Number: US-TEVA-470729USA

PATIENT
  Sex: Male

DRUGS (4)
  1. METOCLOPRAMIDE [Suspect]
     Indication: DIABETIC GASTROPARESIS
  2. METOCLOPRAMIDE [Suspect]
     Indication: GASTROOESOPHAGEAL REFLUX DISEASE
  3. REGLAN [Suspect]
     Indication: DIABETIC GASTROPARESIS
  4. REGLAN [Suspect]
     Indication: GASTROOESOPHAGEAL REFLUX DISEASE

REACTIONS (14)
  - Tardive dyskinesia [Unknown]
  - Movement disorder [Unknown]
  - Nervous system disorder [Unknown]
  - Extrapyramidal disorder [Unknown]
  - Parkinsonism [Unknown]
  - Dyskinesia [Unknown]
  - Dyskinesia [Unknown]
  - Dyskinesia [Unknown]
  - Dyskinesia [Unknown]
  - Eating disorder [Unknown]
  - Speech disorder [Unknown]
  - Dysphagia [Unknown]
  - Activities of daily living impaired [Unknown]
  - Dyskinesia [Unknown]
